FAERS Safety Report 7187288-1 (Version None)
Quarter: 2010Q4

REPORT INFORMATION
  Report Type: 
  Country: None (occurrence: None)
  Receive Date: 20101222
  Receipt Date: 20101221
  Transmission Date: 20110411
  Serious: Yes (Other)
  Sender: FDA-Public Use
  Company Number: US-ABBOTT-10P-163-0691707-00

PATIENT
  Sex: Female
  Weight: 103.06 kg

DRUGS (19)
  1. LUPRON DEPOT [Suspect]
     Indication: ENDOMETRIOSIS
     Dates: start: 20101029
  2. NORCO [Concomitant]
     Indication: PAIN
  3. FLEXERIL [Concomitant]
     Indication: PAIN
  4. QVAR 40 [Concomitant]
     Indication: ASTHMA
  5. VENTOLIN [Concomitant]
     Indication: ASTHMA
  6. CALCIUM MAGNESIUM [Concomitant]
     Indication: MINERAL SUPPLEMENTATION
  7. LYSINE [Concomitant]
     Indication: SUPPLEMENTATION THERAPY
  8. MULTIPLE VITAMINS [Concomitant]
     Indication: VITAMIN SUPPLEMENTATION
  9. LORAZEPAM [Concomitant]
     Indication: ANXIETY
  10. HYDROCORTISONE [Concomitant]
     Indication: HAEMORRHOIDS
  11. MORPHINE SULFATE [Concomitant]
     Indication: PAIN
  12. OMEPRAZOLE [Concomitant]
     Indication: GASTROOESOPHAGEAL REFLUX DISEASE
  13. FLUTICASONE PROPIONATE [Concomitant]
     Indication: PRODUCT USED FOR UNKNOWN INDICATION
  14. BENADRYL [Concomitant]
     Indication: HYPERSENSITIVITY
  15. FIORICET [Concomitant]
     Indication: MIGRAINE
  16. PROMETHAZINE [Concomitant]
     Indication: PRODUCT USED FOR UNKNOWN INDICATION
  17. DOVENEX [Concomitant]
     Indication: PRODUCT USED FOR UNKNOWN INDICATION
  18. TRIAMCINALONE [Concomitant]
     Indication: PRODUCT USED FOR UNKNOWN INDICATION
  19. TRAZODONE HCL [Concomitant]
     Indication: INSOMNIA

REACTIONS (3)
  - THYROID CANCER [None]
  - THYROID NEOPLASM [None]
  - VULVOVAGINAL MYCOTIC INFECTION [None]
